FAERS Safety Report 7795955-1 (Version None)
Quarter: 2011Q4

REPORT INFORMATION
  Report Type: 
  Country: None (occurrence: None)
  Receive Date: 20111004
  Receipt Date: 20110926
  Transmission Date: 20120403
  Serious: Yes (Hospitalization)
  Sender: FDA-Public Use
  Company Number: PHHY2011ES86177

PATIENT
  Age: 63 Year
  Sex: Female

DRUGS (6)
  1. TORASEMIDE [Concomitant]
     Indication: HYPERTENSION
     Dosage: 20 MG, QD
     Dates: start: 20110609, end: 20110613
  2. LISINOPRIL [Concomitant]
     Indication: HYPERTENSION
     Dosage: 10 MG, QD
     Dates: start: 20060101
  3. RIMSTAR [Suspect]
     Indication: TUBERCULOSIS
     Route: 048
     Dates: start: 20110523, end: 20110613
  4. LYRICA [Concomitant]
     Indication: NEURALGIA
     Dosage: 500 MG, QD
     Dates: start: 20110613
  5. ATORVASTATIN [Concomitant]
     Indication: DYSLIPIDAEMIA
     Dosage: 20 MG, QD
     Dates: start: 20100101
  6. EFFICIB [Concomitant]

REACTIONS (11)
  - RENAL FAILURE ACUTE [None]
  - HYPOAESTHESIA [None]
  - TREMOR [None]
  - GAIT DISTURBANCE [None]
  - VISION BLURRED [None]
  - DEPRESSED LEVEL OF CONSCIOUSNESS [None]
  - DYSARTHRIA [None]
  - PERIPHERAL SENSORY NEUROPATHY [None]
  - HYPERKALAEMIA [None]
  - ASTERIXIS [None]
  - MYOPATHY [None]
